FAERS Safety Report 24649007 (Version 1)
Quarter: 2024Q4

REPORT INFORMATION
  Report Type: Spontaneous
  Country: US (occurrence: US)
  Receive Date: 20241121
  Receipt Date: 20241121
  Transmission Date: 20250115
  Serious: No
  Sender: ALEXION PHARMACEUTICALS
  Company Number: US-AstraZeneca-CH-00752407A

PATIENT
  Age: 61 Year

DRUGS (1)
  1. FASENRA [Suspect]
     Active Substance: BENRALIZUMAB
     Dosage: UNK
     Route: 065

REACTIONS (3)
  - Toothache [Unknown]
  - Inappropriate schedule of product administration [Unknown]
  - Arthralgia [Unknown]
